FAERS Safety Report 25189173 (Version 1)
Quarter: 2025Q2

REPORT INFORMATION
  Report Type: Spontaneous
  Country: US (occurrence: None)
  Receive Date: 20250410
  Receipt Date: 20250410
  Transmission Date: 20250717
  Serious: Yes (Life-Threatening, Hospitalization)
  Sender: FDA-CTU
  Company Number: None

PATIENT
  Age: 73 Year
  Sex: Male
  Weight: 83.9 kg

DRUGS (1)
  1. BREYANZI [Suspect]
     Active Substance: LISOCABTAGENE MARALEUCEL
     Indication: Chronic lymphocytic leukaemia
     Route: 041
     Dates: start: 20241223, end: 20241223

REACTIONS (13)
  - Immune effector cell-associated neurotoxicity syndrome [None]
  - Cytokine release syndrome [None]
  - Encephalopathy [None]
  - Serum ferritin increased [None]
  - Blood creatinine increased [None]
  - Hepatic cirrhosis [None]
  - Xanthochromia [None]
  - Cytomegalovirus infection [None]
  - Troponin increased [None]
  - Agitation [None]
  - Oxygen saturation decreased [None]
  - Dyspnoea [None]
  - Hypotension [None]

NARRATIVE: CASE EVENT DATE: 20241228
